FAERS Safety Report 26125741 (Version 1)
Quarter: 2025Q4

REPORT INFORMATION
  Report Type: Spontaneous
  Country: US (occurrence: US)
  Receive Date: 20251205
  Receipt Date: 20251205
  Transmission Date: 20260118
  Serious: Yes (Disabling, Other)
  Sender: OTSUKA
  Company Number: US-OTSUKA-2025_029453

PATIENT
  Age: 79 Year
  Sex: Male

DRUGS (1)
  1. REXULTI [Suspect]
     Active Substance: BREXPIPRAZOLE
     Indication: Depression
     Dosage: 1 DF, QD (TAKE 1 TABLET BY MOUTH DAILY)
     Dates: start: 20250820, end: 20251012

REACTIONS (8)
  - Seizure like phenomena [Recovered/Resolved]
  - Fall [Recovered/Resolved]
  - Diabetes mellitus [Recovered/Resolved]
  - Dizziness [Recovered/Resolved]
  - Presyncope [Recovered/Resolved]
  - Dysstasia [Recovered/Resolved]
  - Tremor [Recovered/Resolved]
  - Orthostatic hypotension [Recovered/Resolved]

NARRATIVE: CASE EVENT DATE: 20250927
